FAERS Safety Report 7596920 (Version 2)
Quarter: 2017Q1

REPORT INFORMATION
  Report Type: Report from Study
  Country: US (occurrence: US)
  Receive Date: 20100920
  Receipt Date: 20170110
  Transmission Date: 20170429
  Serious: No
  Sender: FDA-Public Use
  Company Number: US-ASTRAZENECA-2007UW25038

PATIENT
  Sex: Female
  Weight: 108.9 kg

DRUGS (10)
  1. SEROQUEL [Suspect]
     Active Substance: QUETIAPINE FUMARATE
     Indication: PARANOIA
     Dosage: QUETIAPINE FUMARATE XR 600MG
     Route: 048
  2. SEROQUEL [Suspect]
     Active Substance: QUETIAPINE FUMARATE
     Indication: MENTAL DISORDER
     Route: 048
     Dates: end: 201609
  3. SEROQUEL [Suspect]
     Active Substance: QUETIAPINE FUMARATE
     Indication: NEGATIVE THOUGHTS
     Route: 048
     Dates: end: 201609
  4. SEROQUEL [Suspect]
     Active Substance: QUETIAPINE FUMARATE
     Indication: PARANOIA
     Route: 048
     Dates: end: 201609
  5. SEROQUEL [Suspect]
     Active Substance: QUETIAPINE FUMARATE
     Indication: MENTAL DISORDER
     Route: 048
  6. SEROQUEL [Suspect]
     Active Substance: QUETIAPINE FUMARATE
     Indication: NEGATIVE THOUGHTS
     Route: 048
  7. ZOLOFT [Concomitant]
     Active Substance: SERTRALINE HYDROCHLORIDE
  8. SEROQUEL [Suspect]
     Active Substance: QUETIAPINE FUMARATE
     Indication: MENTAL DISORDER
     Dosage: QUETIAPINE FUMARATE XR 600MG
     Route: 048
  9. SEROQUEL [Suspect]
     Active Substance: QUETIAPINE FUMARATE
     Indication: NEGATIVE THOUGHTS
     Dosage: QUETIAPINE FUMARATE XR 600MG
     Route: 048
  10. SEROQUEL [Suspect]
     Active Substance: QUETIAPINE FUMARATE
     Indication: PARANOIA
     Route: 048

REACTIONS (26)
  - Abdominal distension [Unknown]
  - Dyspepsia [Unknown]
  - Product substitution issue [Unknown]
  - Dry mouth [Unknown]
  - Dyspnoea [Unknown]
  - Middle insomnia [Unknown]
  - Headache [Unknown]
  - Hypertension [Unknown]
  - Insomnia [Unknown]
  - Weight increased [Unknown]
  - Food craving [Unknown]
  - Paraesthesia [Unknown]
  - Tongue disorder [Unknown]
  - Feeling abnormal [Unknown]
  - Euphoric mood [Unknown]
  - Hunger [Unknown]
  - Malaise [Unknown]
  - Electrocardiogram abnormal [Unknown]
  - Angina pectoris [Unknown]
  - Gait disturbance [Unknown]
  - Thirst [Unknown]
  - Pain [Unknown]
  - Paranoia [Unknown]
  - Somnolence [Unknown]
  - Hypoaesthesia [Unknown]
  - Laboratory test abnormal [Unknown]
